FAERS Safety Report 15596918 (Version 1)
Quarter: 2018Q4

REPORT INFORMATION
  Report Type: Spontaneous
  Country: GB (occurrence: GB)
  Receive Date: 20181108
  Receipt Date: 20181108
  Transmission Date: 20190205
  Serious: Yes (Other)
  Sender: FDA-Public Use
  Company Number: GB-TEVA-2018-GB-972243

PATIENT
  Age: 41 Year
  Sex: Male
  Weight: 72 kg

DRUGS (5)
  1. VENLAFAXINE [Suspect]
     Active Substance: VENLAFAXINE HYDROCHLORIDE
     Route: 065
     Dates: start: 20180925
  2. NAPROXEN. [Concomitant]
     Active Substance: NAPROXEN
     Dosage: 3 DOSAGE FORMS DAILY; WITH FOOD
     Route: 065
     Dates: start: 20171102
  3. PRAMIPEXOLE. [Concomitant]
     Active Substance: PRAMIPEXOLE
     Dosage: 1 DOSAGE FORMS DAILY; AT NIGHT
     Route: 065
     Dates: start: 20180709
  4. CYCLIZINE [Concomitant]
     Active Substance: CYCLIZINE
     Dosage: TAKE 1 UP TO THREE TIMES DAILY
     Route: 065
     Dates: start: 20180514, end: 20180821
  5. QUETIAPINE. [Concomitant]
     Active Substance: QUETIAPINE
     Dosage: 3 DOSAGE FORMS DAILY;
     Route: 065
     Dates: start: 20180523

REACTIONS (1)
  - Aggression [Recovered/Resolved]

NARRATIVE: CASE EVENT DATE: 20181009
